FAERS Safety Report 6230825-1 (Version None)
Quarter: 2009Q2

REPORT INFORMATION
  Report Type: 
  Country: None (occurrence: None)
  Receive Date: 20090611
  Receipt Date: 20090604
  Transmission Date: 20091009
  Serious: Yes (Death, Hospitalization)
  Sender: FDA-Public Use
  Company Number: ADR2532009 (MHRA ADR NO.: ADR 20434645-001)

PATIENT
  Age: 87 Year
  Sex: Female

DRUGS (15)
  1. CIPROFLOXACIN [Suspect]
     Dosage: 500 MG ORAL
     Route: 048
     Dates: start: 20050915, end: 20050922
  2. CEFUROXIME [Concomitant]
  3. LANSOPRAZOLE [Concomitant]
  4. ASPIRIN [Concomitant]
  5. CITALOPRAM [Concomitant]
  6. CO-AMILOFRUSE [Concomitant]
  7. ACETAMINOPHEN W/ CODEINE [Concomitant]
  8. DILTIAZEM [Concomitant]
  9. FLUCONAZOLE [Concomitant]
  10. IPRATROPIUM BROMIDE [Concomitant]
  11. ISOSORBIDE MONONITRATE [Concomitant]
  12. SANDO-K [Concomitant]
  13. SERETIDE [Concomitant]
  14. SODIUM BICARBONATE [Concomitant]
  15. TIOTROPIUM BROMIDE [Concomitant]

REACTIONS (7)
  - CLOSTRIDIAL INFECTION [None]
  - FLANK PAIN [None]
  - GENERAL PHYSICAL HEALTH DETERIORATION [None]
  - INTESTINAL ISCHAEMIA [None]
  - LOWER RESPIRATORY TRACT INFECTION [None]
  - PERITONITIS [None]
  - URINARY TRACT INFECTION [None]
